FAERS Safety Report 6341147-2 (Version None)
Quarter: 2009Q3

REPORT INFORMATION
  Report Type: 
  Country: None (occurrence: None)
  Receive Date: 20090904
  Receipt Date: 20090216
  Transmission Date: 20100115
  Serious: No
  Sender: FDA-Public Use
  Company Number: A0768918A

PATIENT
  Age: 66 Year
  Sex: Female

DRUGS (9)
  1. REQUIP [Suspect]
     Indication: RESTLESS LEGS SYNDROME
     Dosage: 1.25MG PER DAY
     Route: 048
     Dates: end: 20090101
  2. REQUIP XL [Suspect]
     Dosage: 2MG PER DAY
     Route: 048
     Dates: end: 20090211
  3. FOLIC ACID [Concomitant]
  4. FUROSEMIDE [Concomitant]
  5. CARDIZEM [Concomitant]
  6. WARFARIN SODIUM [Concomitant]
  7. QUINAPRIL [Concomitant]
  8. TOPROL-XL [Concomitant]
  9. BONIVA [Concomitant]

REACTIONS (3)
  - DRUG INEFFECTIVE [None]
  - DYSPNOEA [None]
  - PALPITATIONS [None]
